FAERS Safety Report 8949393 (Version 1)
Quarter: 2012Q4

REPORT INFORMATION
  Report Type: 
  Country: US (occurrence: US)
  Receive Date: 20121206
  Receipt Date: 20121206
  Transmission Date: 20130627
  Serious: Yes (Hospitalization)
  Sender: FDA-Public Use
  Company Number: US-ELI_LILLY_AND_COMPANY-US201211008737

PATIENT
  Age: 44 Year

DRUGS (1)
  1. ZYPREXA RELPREVV [Suspect]
     Dosage: 300 mg, unknown

REACTIONS (1)
  - Hospitalisation [Recovered/Resolved]
